FAERS Safety Report 9022550 (Version 1)
Quarter: 2013Q1

REPORT INFORMATION
  Report Type: Spontaneous
  Country: US (occurrence: US)
  Receive Date: 20130118
  Receipt Date: 20130118
  Transmission Date: 20140127
  Serious: No
  Sender: FDA-Public Use
  Company Number: US-GLAXOSMITHKLINE-A0972017A

PATIENT
  Age: 65 Year
  Sex: Male

DRUGS (5)
  1. PROMACTA [Suspect]
     Indication: PRODUCT USED FOR UNKNOWN INDICATION
     Dosage: 25MG PER DAY
     Route: 048
     Dates: start: 20120214
  2. PROCRIT [Concomitant]
  3. INCIVEK [Concomitant]
  4. PEGASYS [Concomitant]
  5. UNKNOWN MEDICATION [Concomitant]

REACTIONS (1)
  - Rash [Unknown]
